FAERS Safety Report 6076001-7 (Version None)
Quarter: 2009Q1

REPORT INFORMATION
  Report Type: 
  Country: None (occurrence: None)
  Receive Date: 20090212
  Receipt Date: 20090202
  Transmission Date: 20090719
  Serious: Yes (Hospitalization, Other)
  Sender: FDA-Public Use
  Company Number: JP-PFIZER INC-2009163683

PATIENT

DRUGS (1)
  1. PREDNISOLONE STEAGLATE AND PREDNISOLONE [Suspect]
     Indication: VASCULITIS
     Dosage: UNK
     Route: 048

REACTIONS (1)
  - LARGE INTESTINE PERFORATION [None]
